FAERS Safety Report 19385278 (Version 1)
Quarter: 2021Q2

REPORT INFORMATION
  Report Type: Report from Study
  Country: US (occurrence: US)
  Receive Date: 20210607
  Receipt Date: 20210607
  Transmission Date: 20210717
  Serious: Yes (Hospitalization)
  Sender: FDA-Public Use
  Company Number: US-DOVA PHARMACEUTICALS INC.-DOV-000932

PATIENT
  Sex: Female

DRUGS (3)
  1. DOPTELET [Suspect]
     Active Substance: AVATROMBOPAG MALEATE
     Indication: THROMBOCYTOPENIA
  2. DOPTELET [Suspect]
     Active Substance: AVATROMBOPAG MALEATE
     Indication: NEOPLASM MALIGNANT
     Dosage: 40 MILLIGRAM, QD
     Route: 048
     Dates: start: 20210224
  3. LYNPARZA [Concomitant]
     Active Substance: OLAPARIB
     Indication: BREAST CANCER FEMALE

REACTIONS (1)
  - Back pain [Unknown]
